FAERS Safety Report 5109859-6 (Version None)
Quarter: 2006Q3

REPORT INFORMATION
  Report Type: 
  Country: None (occurrence: None)
  Receive Date: 20060919
  Receipt Date: 20060919
  Transmission Date: 20061208
  Serious: Yes (Other)
  Sender: FDA-Public Use
  Company Number: None

PATIENT
  Age: 56 Year
  Sex: Female
  Weight: 67.1324 kg

DRUGS (3)
  1. TOPAMAX [Suspect]
     Indication: MIGRAINE PROPHYLAXIS
     Dosage: 50 MG DAILY ORAL
     Route: 048
     Dates: end: 20051201
  2. ALEVE [Concomitant]
  3. ALLEGRA-D 12 HOUR [Concomitant]

REACTIONS (9)
  - AMNESIA [None]
  - BLOOD PRESSURE FLUCTUATION [None]
  - COGNITIVE DISORDER [None]
  - DISTURBANCE IN ATTENTION [None]
  - EXPRESSIVE LANGUAGE DISORDER [None]
  - GAIT DISTURBANCE [None]
  - IMPAIRED WORK ABILITY [None]
  - MOTOR DYSFUNCTION [None]
  - SLEEP DISORDER [None]
